FAERS Safety Report 15999406 (Version 1)
Quarter: 2019Q1

REPORT INFORMATION
  Report Type: Spontaneous
  Country: US (occurrence: US)
  Receive Date: 20190222
  Receipt Date: 20190222
  Transmission Date: 20190418
  Serious: Yes (Other)
  Sender: FDA-Public Use
  Company Number: None

PATIENT
  Age: 28 Year
  Sex: Female

DRUGS (1)
  1. DON^T BITE ME INSECT REPELLENT [Suspect]
     Active Substance: ALOE VERA LEAF\THIAMINE
     Indication: INFECTION PROPHYLAXIS
     Dosage: ?          OTHER FREQUENCY:ONCE;?
     Route: 061

REACTIONS (2)
  - Application site dermatitis [None]
  - Eosinophilic cellulitis [None]

NARRATIVE: CASE EVENT DATE: 20170801
